FAERS Safety Report 6204770-1 (Version None)
Quarter: 2009Q2

REPORT INFORMATION
  Report Type: 
  Country: None (occurrence: None)
  Receive Date: 20090527
  Receipt Date: 20090514
  Transmission Date: 20091009
  Serious: Yes (Hospitalization, Disabling, Other)
  Sender: FDA-Public Use
  Company Number: FR-PFIZER INC-2009171705

PATIENT
  Age: 25 Year

DRUGS (2)
  1. NEURONTIN [Suspect]
     Indication: EPILEPSY
     Dosage: UNK
     Dates: end: 20090214
  2. LOXAPAC [Suspect]
     Indication: ANXIETY
     Dosage: 5 DROPS, 3X/DAY (IN THE MORNING, AT MIDDAY AND IN THE EVENING)
     Dates: end: 20090214

REACTIONS (5)
  - COMA [None]
  - HEMIPLEGIA [None]
  - NEUTROPENIA [None]
  - RASH [None]
  - SYSTEMIC LUPUS ERYTHEMATOSUS [None]
